FAERS Safety Report 23645084 (Version 1)
Quarter: 2024Q1

REPORT INFORMATION
  Report Type: Spontaneous
  Country: DE (occurrence: DE)
  Receive Date: 20240318
  Receipt Date: 20240318
  Transmission Date: 20240410
  Serious: Yes (Other)
  Sender: FDA-Public Use
  Company Number: DE-Merck Healthcare KGaA-2024014620

PATIENT
  Age: 74 Year
  Sex: Male

DRUGS (2)
  1. BAVENCIO [Suspect]
     Active Substance: AVELUMAB
     Indication: Metastatic renal cell carcinoma
     Dates: start: 202111
  2. AXITINIB [Suspect]
     Active Substance: AXITINIB
     Indication: Metastatic renal cell carcinoma
     Dates: start: 202111

REACTIONS (4)
  - Metastases to liver [Unknown]
  - Metastases to pancreas [Unknown]
  - Autoimmune pancreatitis [Unknown]
  - Disease progression [Unknown]

NARRATIVE: CASE EVENT DATE: 20220901
